FAERS Safety Report 13857016 (Version 1)
Quarter: 2017Q3

REPORT INFORMATION
  Report Type: Spontaneous
  Country: US (occurrence: US)
  Receive Date: 20170810
  Receipt Date: 20170810
  Transmission Date: 20171127
  Serious: No
  Sender: FDA-Public Use
  Company Number: US-ROCHE-1343675

PATIENT
  Sex: Female

DRUGS (2)
  1. TAMIFLU [Suspect]
     Active Substance: OSELTAMIVIR PHOSPHATE
     Indication: INFLUENZA
     Dosage: 10 CAPSULES (FOR 5 DAYS)
     Route: 048
     Dates: start: 20140131, end: 20140203
  2. ALLEGRA [Concomitant]
     Active Substance: FEXOFENADINE HYDROCHLORIDE

REACTIONS (6)
  - Diarrhoea [Unknown]
  - Insomnia [Unknown]
  - Eye pain [Unknown]
  - Lacrimation increased [Unknown]
  - Eye swelling [Unknown]
  - Ocular hyperaemia [Unknown]
